FAERS Safety Report 13105929 (Version 1)
Quarter: 2017Q1

REPORT INFORMATION
  Report Type: Spontaneous
  Country: CN (occurrence: CN)
  Receive Date: 20170111
  Receipt Date: 20170111
  Transmission Date: 20170428
  Serious: Yes (Other)
  Sender: FDA-Public Use
  Company Number: CN-ASTRAZENECA-2016SF31742

PATIENT
  Age: 2 Year
  Sex: Female

DRUGS (2)
  1. AZITHROMYCIN ANHYDROUS. [Concomitant]
     Active Substance: AZITHROMYCIN ANHYDROUS
     Indication: BRONCHITIS
  2. LOSEC [Suspect]
     Active Substance: OMEPRAZOLE
     Dosage: 13.0DF ONCE/SINGLE ADMINISTRATION
     Route: 048
     Dates: start: 20161209

REACTIONS (2)
  - Pyrexia [Recovered/Resolved]
  - Accidental exposure to product by child [Unknown]

NARRATIVE: CASE EVENT DATE: 20161209
